FAERS Safety Report 17292838 (Version 3)
Quarter: 2022Q4

REPORT INFORMATION
  Report Type: Spontaneous
  Country: FR (occurrence: FR)
  Receive Date: 20200121
  Receipt Date: 20221021
  Transmission Date: 20230112
  Serious: Yes (Death, Hospitalization, Other)
  Sender: FDA-Public Use
  Company Number: None

PATIENT
  Age: 38 Year
  Sex: Female

DRUGS (4)
  1. METHOTREXATE [Suspect]
     Active Substance: METHOTREXATE
     Indication: Rheumatoid arthritis
     Dosage: 10 MG
  2. BETAMETHASONE VALERATE [Suspect]
     Active Substance: BETAMETHASONE VALERATE
     Indication: Pruritus
     Dosage: 600 G,20 TUBES A MONTH OR 600 GRAMS PER MONTH OR 7.2 KG PER YEAR
  3. DEXERYL [Concomitant]
     Dosage: UNK UNK, QD
  4. BETAMETHASONE VALERATE [Suspect]
     Active Substance: BETAMETHASONE VALERATE
     Indication: Pruritus
     Dosage: 600 G, Q1MON

REACTIONS (23)
  - Fibula fracture [Fatal]
  - Skin infection [Fatal]
  - Wound necrosis [Fatal]
  - Serratia infection [Unknown]
  - Osteoporosis [Fatal]
  - Amyotrophy [Unknown]
  - Septic shock [Fatal]
  - Intertrigo [Fatal]
  - Traumatic fracture [Fatal]
  - Skin atrophy [Fatal]
  - Renal failure [Fatal]
  - Fall [Fatal]
  - Multiple organ dysfunction syndrome [Fatal]
  - Necrosis [Unknown]
  - Telangiectasia [Unknown]
  - Intentional product misuse [Fatal]
  - Netherton^s syndrome [Fatal]
  - Pseudomonas infection [Unknown]
  - Cushing^s syndrome [Fatal]
  - Adrenal insufficiency [Fatal]
  - Adrenocorticotropic hormone deficiency [Fatal]
  - Skin striae [Unknown]
  - Drug abuse [Fatal]
